FAERS Safety Report 5489158-3 (Version None)
Quarter: 2007Q3

REPORT INFORMATION
  Report Type: 
  Country: None (occurrence: None)
  Receive Date: 20070925
  Receipt Date: 20070914
  Transmission Date: 20080115
  Serious: No
  Sender: FDA-Public Use
  Company Number: 2007US001226

PATIENT
  Age: 83 Year
  Sex: Female

DRUGS (6)
  1. VESICARE [Suspect]
     Indication: DRUG USE FOR UNKNOWN INDICATION
     Dosage: 5MG
  2. VERAPAMIL(VERAPAMIL HYDROCHLORIDE) [Concomitant]
  3. PREDNISONE TAB [Concomitant]
  4. ASPIRIN [Concomitant]
  5. NITROFURANTOIN [Concomitant]
  6. PLAQUENIL [Concomitant]

REACTIONS (2)
  - FATIGUE [None]
  - NAUSEA [None]
